FAERS Safety Report 7319891-X (Version None)
Quarter: 2011Q1

REPORT INFORMATION
  Report Type: 
  Country: None (occurrence: None)
  Receive Date: 20110223
  Receipt Date: 20110223
  Transmission Date: 20110831
  Serious: Yes (Other)
  Sender: FDA-Public Use
  Company Number: None

PATIENT
  Sex: Female
  Weight: 104.3273 kg

DRUGS (1)
  1. SIMVASTATIN [Suspect]
     Dosage: 10MG QD ORAL
     Route: 048
     Dates: start: 20050101, end: 20060101

REACTIONS (4)
  - MYALGIA [None]
  - PRURITUS [None]
  - SKIN IRRITATION [None]
  - DRUG INEFFECTIVE [None]
